FAERS Safety Report 15562479 (Version 1)
Quarter: 2018Q4

REPORT INFORMATION
  Report Type: Spontaneous
  Country: US (occurrence: US)
  Receive Date: 20181029
  Receipt Date: 20181029
  Transmission Date: 20190205
  Serious: Yes (Other)
  Sender: FDA-Public Use
  Company Number: PHEH2018US045092

PATIENT
  Sex: Male

DRUGS (2)
  1. TELOTRISTAT ETHYL [Concomitant]
     Active Substance: TELOTRISTAT ETHYL
     Dosage: 250 MG, QD
     Route: 048
  2. AFINITOR [Suspect]
     Active Substance: EVEROLIMUS
     Dosage: UNK
     Route: 065

REACTIONS (5)
  - Insomnia [Unknown]
  - Abdominal pain [Unknown]
  - Malignant neoplasm progression [Unknown]
  - Carcinoid syndrome [Unknown]
  - Fatigue [Unknown]
